FAERS Safety Report 8165151-7 (Version None)
Quarter: 2012Q1

REPORT INFORMATION
  Report Type: 
  Country: None (occurrence: None)
  Receive Date: 20120227
  Receipt Date: 20120223
  Transmission Date: 20120608
  Serious: No
  Sender: FDA-Public Use
  Company Number: US-PFIZER INC-2012048731

PATIENT
  Sex: Female

DRUGS (2)
  1. ADVIL CONGESTION RELIEF [Suspect]
     Indication: MALAISE
     Dosage: UNK, 2X/DAY
     Route: 048
     Dates: start: 20120201, end: 20120201
  2. ADVIL CONGESTION RELIEF [Suspect]
     Indication: NASOPHARYNGITIS

REACTIONS (1)
  - DRUG INEFFECTIVE [None]
